FAERS Safety Report 21076422 (Version 1)
Quarter: 2022Q3

REPORT INFORMATION
  Report Type: Spontaneous
  Country: US (occurrence: None)
  Receive Date: 20220713
  Receipt Date: 20220713
  Transmission Date: 20221027
  Serious: Yes (Other)
  Sender: FDA-Public Use
  Company Number: None

PATIENT
  Age: 51 Year
  Sex: Male
  Weight: 147 kg

DRUGS (1)
  1. SOLIRIS [Suspect]
     Active Substance: ECULIZUMAB

REACTIONS (6)
  - Pruritus [None]
  - Scratch [None]
  - Erythema [None]
  - Urticaria [None]
  - Hypersensitivity [None]
  - Blood pressure decreased [None]

NARRATIVE: CASE EVENT DATE: 20220706
